FAERS Safety Report 23745827 (Version 1)
Quarter: 2024Q2

REPORT INFORMATION
  Report Type: Spontaneous
  Country: US (occurrence: US)
  Receive Date: 20240416
  Receipt Date: 20240416
  Transmission Date: 20240715
  Serious: No
  Sender: FDA-Public Use
  Company Number: US-AJANTA-2023AJA00192

PATIENT
  Age: 69 Year
  Sex: Female

DRUGS (1)
  1. CHOLESTYRAMINE [Suspect]
     Active Substance: CHOLESTYRAMINE
     Indication: Product used for unknown indication
     Route: 048
     Dates: start: 2023, end: 2023

REACTIONS (4)
  - Product solubility abnormal [Unknown]
  - Product substitution issue [Unknown]
  - Product physical issue [Unknown]
  - Cough [Unknown]

NARRATIVE: CASE EVENT DATE: 20230101
